FAERS Safety Report 24838241 (Version 2)
Quarter: 2025Q1

REPORT INFORMATION
  Report Type: Spontaneous
  Country: US (occurrence: US)
  Receive Date: 20250113
  Receipt Date: 20250327
  Transmission Date: 20250409
  Serious: Yes (Other)
  Sender: PFIZER
  Company Number: US-PFIZER INC-PV202500003550

PATIENT
  Age: 64 Year
  Sex: Male

DRUGS (1)
  1. XELJANZ [Suspect]
     Active Substance: TOFACITINIB CITRATE
     Indication: Colitis ulcerative
     Dosage: 10 MG, 2X/DAY
     Route: 048
     Dates: start: 202404

REACTIONS (4)
  - Skin cancer [Unknown]
  - Weight increased [Recovering/Resolving]
  - Blood cholesterol increased [Unknown]
  - Increased appetite [Recovering/Resolving]

NARRATIVE: CASE EVENT DATE: 20240401
